FAERS Safety Report 8517927-1 (Version None)
Quarter: 2012Q3

REPORT INFORMATION
  Report Type: 
  Country: None (occurrence: None)
  Receive Date: 20120718
  Receipt Date: 20110720
  Transmission Date: 20120928
  Serious: No
  Sender: FDA-Public Use
  Company Number: US-BRISTOL-MYERS SQUIBB COMPANY-15913676

PATIENT
  Age: 66 Year
  Sex: Female
  Weight: 82 kg

DRUGS (1)
  1. WARFARIN SODIUM [Suspect]
     Dosage: DOSE DECREASED WARFARIN 5 MG EACH DAY UNTIL NEXT WEDNESDAY.
     Dates: start: 20070101

REACTIONS (1)
  - INTERNATIONAL NORMALISED RATIO FLUCTUATION [None]
